FAERS Safety Report 4518914-0 (Version None)
Quarter: 2004Q4

REPORT INFORMATION
  Report Type: 
  Country: None (occurrence: None)
  Receive Date: 20041203
  Receipt Date: 20041203
  Transmission Date: 20050328
  Serious: Yes (Hospitalization)
  Sender: FDA-Public Use
  Company Number: None

PATIENT
  Age: 19 Year
  Sex: Male
  Weight: 101.6057 kg

DRUGS (7)
  1. GEODON [Suspect]
     Indication: BIPOLAR DISORDER
     Dosage: 140 MG QHS
     Dates: start: 20040823
  2. GEODON [Suspect]
  3. TRILEPTAL [Concomitant]
  4. SEROQUEL [Concomitant]
  5. SYNTHROID [Concomitant]
  6. PAXIL [Concomitant]
  7. VISTARIL [Concomitant]

REACTIONS (1)
  - PRIAPISM [None]
